FAERS Safety Report 5396762-X (Version None)
Quarter: 2007Q3

REPORT INFORMATION
  Report Type: 
  Country: None (occurrence: None)
  Receive Date: 20070725
  Receipt Date: 20070713
  Transmission Date: 20080115
  Serious: Yes (Other)
  Sender: FDA-Public Use
  Company Number: FR-ROCHE-507938

PATIENT
  Sex: Male

DRUGS (1)
  1. INVIRASE [Suspect]
     Route: 048

REACTIONS (1)
  - CYTOLYTIC HEPATITIS [None]
